FAERS Safety Report 7326597-X (Version None)
Quarter: 2011Q1

REPORT INFORMATION
  Report Type: 
  Country: None (occurrence: None)
  Receive Date: 20110302
  Receipt Date: 20110223
  Transmission Date: 20110831
  Serious: Yes (Hospitalization)
  Sender: FDA-Public Use
  Company Number: US-ALEXION-A201001517

PATIENT
  Sex: Female
  Weight: 72.562 kg

DRUGS (9)
  1. MAGNESIUM OXIDE [Concomitant]
     Dosage: 400 MG, BID
  2. SOLIRIS [Suspect]
     Indication: PAROXYSMAL NOCTURNAL HAEMOGLOBINURIA
     Dosage: 900 G, Q2W
     Route: 042
     Dates: start: 20101014
  3. TYLENOL (CAPLET) [Concomitant]
     Dosage: PRN TRANSFUSION
  4. SOLIRIS [Suspect]
     Dosage: UNK
  5. CYCLOSPORINE [Concomitant]
     Dosage: 200 MG, QD
     Route: 048
  6. FAMVIR                             /01226201/ [Concomitant]
     Dosage: 250 MG, BID
  7. LASIX [Concomitant]
     Dosage: AFTER EVENT
  8. BENADRYL [Concomitant]
     Dosage: PRN TRANSFUSION
  9. HYDROCORTISONE [Concomitant]
     Dosage: PRN TRANSFUSION

REACTIONS (2)
  - VERTIGO [None]
  - TRANSFUSION-RELATED ACUTE LUNG INJURY [None]
